FAERS Safety Report 7576591-9 (Version None)
Quarter: 2011Q2

REPORT INFORMATION
  Report Type: 
  Country: None (occurrence: None)
  Receive Date: 20110628
  Receipt Date: 20110613
  Transmission Date: 20111010
  Serious: Yes (Death)
  Sender: FDA-Public Use
  Company Number: US-BAYER-2011-052266

PATIENT
  Sex: Male

DRUGS (3)
  1. AVELOX [Suspect]
     Indication: PNEUMONIA
  2. INSULIN [Concomitant]
     Indication: DIABETES MELLITUS
  3. METFORMIN HCL [Concomitant]
     Indication: DIABETES MELLITUS

REACTIONS (1)
  - DEATH [None]
